FAERS Safety Report 17030118 (Version 2)
Quarter: 2021Q4

REPORT INFORMATION
  Report Type: Spontaneous
  Country: US (occurrence: US)
  Receive Date: 20191114
  Receipt Date: 20211231
  Transmission Date: 20220303
  Serious: Yes (Life-Threatening, Hospitalization, Other)
  Sender: FDA-Public Use
  Company Number: US-SUN PHARMACEUTICAL INDUSTRIES LTD-2019R1-226983

PATIENT
  Age: 40 Year
  Sex: Male

DRUGS (2)
  1. DEXAMETHASONE [Suspect]
     Active Substance: DEXAMETHASONE
     Indication: Seizure
     Dosage: UNK
     Route: 065
  2. LEVETIRACETAM [Concomitant]
     Active Substance: LEVETIRACETAM
     Indication: Seizure
     Dosage: UNK
     Route: 065

REACTIONS (7)
  - Disseminated strongyloidiasis [Recovering/Resolving]
  - Cardiac failure [Recovering/Resolving]
  - Streptococcal infection [Recovering/Resolving]
  - Strongyloidiasis [Recovering/Resolving]
  - Cytomegalovirus infection [Recovering/Resolving]
  - Varicella zoster virus infection [Recovering/Resolving]
  - Herpes simplex [Recovering/Resolving]
